FAERS Safety Report 5158290-6 (Version None)
Quarter: 2006Q4

REPORT INFORMATION
  Report Type: 
  Country: None (occurrence: None)
  Receive Date: 20061117
  Receipt Date: 20061113
  Transmission Date: 20070319
  Serious: Yes (Hospitalization)
  Sender: FDA-Public Use
  Company Number: MTF20060001

PATIENT
  Age: 61 Year
  Sex: Female

DRUGS (2)
  1. METFORMIN   UNK     UNKNOWN [Suspect]
     Indication: DIABETES MELLITUS
     Dosage: 3 G PER DAY PO
     Route: 048
     Dates: end: 20060101
  2. FLUVASTATIN [Concomitant]

REACTIONS (7)
  - ABDOMINAL PAIN UPPER [None]
  - METABOLIC ACIDOSIS [None]
  - OLIGURIA [None]
  - OVERDOSE [None]
  - PANCREATITIS ACUTE [None]
  - RENAL FAILURE ACUTE [None]
  - VOMITING [None]
